FAERS Safety Report 12428135 (Version 4)
Quarter: 2016Q3

REPORT INFORMATION
  Report Type: Report from Study
  Country: US (occurrence: US)
  Receive Date: 20160602
  Receipt Date: 20160823
  Transmission Date: 20161109
  Serious: Yes (Life-Threatening, Hospitalization, Disabling, Other)
  Sender: FDA-Public Use
  Company Number: PHEH2016US013215

PATIENT
  Age: 69 Year
  Sex: Male

DRUGS (3)
  1. COSENTYX [Suspect]
     Active Substance: SECUKINUMAB
     Indication: PSORIASIS
     Dosage: 300 MG, QW
     Route: 058
     Dates: start: 20150225, end: 20160225
  2. COSENTYX [Suspect]
     Active Substance: SECUKINUMAB
     Indication: PSORIATIC ARTHROPATHY
     Dosage: 300 MG, QMO
     Route: 058
  3. COSENTYX [Suspect]
     Active Substance: SECUKINUMAB
     Route: 065
     Dates: end: 20160226

REACTIONS (18)
  - Weight decreased [Recovering/Resolving]
  - Total lung capacity decreased [Recovering/Resolving]
  - Renal failure [Recovering/Resolving]
  - Small intestinal perforation [Recovering/Resolving]
  - Abdominal pain [Unknown]
  - Dehydration [Recovering/Resolving]
  - Apparent death [Recovering/Resolving]
  - Gastrointestinal necrosis [Recovered/Resolved]
  - Crohn^s disease [Recovered/Resolved]
  - Asthenia [Unknown]
  - Dysstasia [Unknown]
  - Diarrhoea [Recovering/Resolving]
  - Inflammatory bowel disease [Unknown]
  - Pyrexia [Unknown]
  - Malaise [Unknown]
  - Sepsis [Recovering/Resolving]
  - Vomiting [Unknown]
  - Colitis ischaemic [Recovered/Resolved]

NARRATIVE: CASE EVENT DATE: 20160224
